FAERS Safety Report 6037405-1 (Version None)
Quarter: 2009Q1

REPORT INFORMATION
  Report Type: 
  Country: None (occurrence: None)
  Receive Date: 20090114
  Receipt Date: 20090112
  Transmission Date: 20090719
  Serious: Yes (Hospitalization)
  Sender: FDA-Public Use
  Company Number: US-ASTRAZENECA-2008UW27683

PATIENT
  Age: 22 Year
  Sex: Male
  Weight: 74.8 kg

DRUGS (2)
  1. SEROQUEL [Suspect]
     Indication: BIPOLAR I DISORDER
     Dosage: 100MG CUT IN HALF
     Route: 048
  2. ABILIFY [Concomitant]

REACTIONS (4)
  - DIZZINESS [None]
  - MYOCARDIAL INFARCTION [None]
  - PRURITUS [None]
  - TACHYCARDIA [None]
